FAERS Safety Report 17103408 (Version 1)
Quarter: 2019Q4

REPORT INFORMATION
  Report Type: Spontaneous
  Country: US (occurrence: US)
  Receive Date: 20191202
  Receipt Date: 20191202
  Transmission Date: 20200122
  Serious: Yes (Other)
  Sender: FDA-Public Use
  Company Number: None

PATIENT
  Age: 44 Year
  Sex: Female
  Weight: 58.5 kg

DRUGS (1)
  1. ALPRAZOLAM. [Suspect]
     Active Substance: ALPRAZOLAM
     Indication: INSOMNIA
     Route: 048
     Dates: start: 20190607, end: 20191129

REACTIONS (4)
  - Gait disturbance [None]
  - Disorientation [None]
  - Feeling abnormal [None]
  - Amnesia [None]

NARRATIVE: CASE EVENT DATE: 20191129
